FAERS Safety Report 8969446 (Version 2)
Quarter: 2013Q1

REPORT INFORMATION
  Report Type: Spontaneous
  Country: JP (occurrence: JP)
  Receive Date: 20121218
  Receipt Date: 20130115
  Transmission Date: 20140127
  Serious: Yes (Other)
  Sender: FDA-Public Use
  Company Number: JP-ASTRAZENECA-2012SE94038

PATIENT
  Age: 64 Year
  Sex: Male

DRUGS (5)
  1. BLOPRESS [Suspect]
     Route: 048
  2. EFONIDIPINE HYDROCLORIDE [Suspect]
     Route: 048
  3. GLIMEPIRIDE [Concomitant]
     Route: 048
  4. ALLOPURINOL [Concomitant]
     Route: 048
  5. SIMVASTATIN [Concomitant]
     Route: 048

REACTIONS (3)
  - Arrhythmia [Unknown]
  - Loss of consciousness [Unknown]
  - Hypotension [Recovered/Resolved]
